FAERS Safety Report 10255989 (Version 2)
Quarter: 2014Q3

REPORT INFORMATION
  Report Type: Spontaneous
  Country: GB (occurrence: GB)
  Receive Date: 20140624
  Receipt Date: 20140711
  Transmission Date: 20150326
  Serious: Yes (Other)
  Sender: FDA-Public Use
  Company Number: GB-PFIZER INC-2014169557

PATIENT
  Age: 18 Year
  Sex: Female

DRUGS (1)
  1. DEPO-PROVERA [Suspect]
     Active Substance: MEDROXYPROGESTERONE ACETATE
     Dosage: UNK

REACTIONS (4)
  - Cutaneous tuberculosis [Unknown]
  - Injection site pain [Unknown]
  - Pyrexia [Unknown]
  - Injection site abscess [Unknown]

NARRATIVE: CASE EVENT DATE: 201303
